FAERS Safety Report 12607438 (Version 1)
Quarter: 2016Q3

REPORT INFORMATION
  Report Type: Report from Study
  Country: BE (occurrence: BE)
  Receive Date: 20160729
  Receipt Date: 20160729
  Transmission Date: 20161109
  Serious: Yes (Death)
  Sender: FDA-Public Use
  Company Number: BE-ABBVIE-14P-013-1251199-00

PATIENT
  Sex: Male

DRUGS (2)
  1. DUODOPA [Suspect]
     Active Substance: CARBIDOPA\LEVODOPA
     Indication: PARKINSON^S DISEASE
     Dosage: AM DOSE=5ML, CD=3.1ML/H FOR 16HRS AND ED=1.5ML
     Route: 050
     Dates: start: 20131217
  2. ASAFLOW [Concomitant]
     Active Substance: ASPIRIN
     Indication: PRODUCT USED FOR UNKNOWN INDICATION

REACTIONS (4)
  - Death [Fatal]
  - Depression [Unknown]
  - Insomnia [Unknown]
  - Feeling abnormal [Unknown]
